FAERS Safety Report 13842314 (Version 1)
Quarter: 2017Q3

REPORT INFORMATION
  Report Type: Spontaneous
  Country: FR (occurrence: FR)
  Receive Date: 20170807
  Receipt Date: 20170807
  Transmission Date: 20171127
  Serious: Yes (Hospitalization)
  Sender: FDA-Public Use
  Company Number: FR-ROCHE-1972961

PATIENT
  Age: 60 Year
  Sex: Male

DRUGS (8)
  1. ETOPOSIDE. [Suspect]
     Active Substance: ETOPOSIDE
     Indication: CENTRAL NERVOUS SYSTEM LYMPHOMA
     Route: 042
     Dates: start: 20170624, end: 20170624
  2. METHOTREXATE. [Suspect]
     Active Substance: METHOTREXATE
     Indication: CENTRAL NERVOUS SYSTEM LYMPHOMA
     Route: 042
     Dates: start: 20170623, end: 20170623
  3. CARMUSTINE [Concomitant]
     Active Substance: CARMUSTINE
     Route: 065
     Dates: start: 20170623
  4. FOLINORAL [Concomitant]
     Active Substance: LEUCOVORIN CALCIUM
  5. ARACYTINE [Suspect]
     Active Substance: CYTARABINE
     Indication: CENTRAL NERVOUS SYSTEM LYMPHOMA
     Dosage: 1.5 G/M2
     Route: 042
     Dates: start: 20170704, end: 20170704
  6. VORAXAZE [Suspect]
     Active Substance: GLUCARPIDASE
     Indication: ACCIDENTAL OVERDOSE
     Dosage: 1000 UNITS
     Route: 042
     Dates: start: 20170625, end: 20170625
  7. PREDNISONE. [Concomitant]
     Active Substance: PREDNISONE
     Route: 065
     Dates: start: 20170623
  8. MABTHERA [Suspect]
     Active Substance: RITUXIMAB
     Indication: CENTRAL NERVOUS SYSTEM LYMPHOMA
     Route: 042
     Dates: start: 20170623, end: 20170623

REACTIONS (1)
  - Hepatocellular injury [Not Recovered/Not Resolved]

NARRATIVE: CASE EVENT DATE: 20170629
